FAERS Safety Report 5308130-7 (Version None)
Quarter: 2007Q2

REPORT INFORMATION
  Report Type: 
  Country: None (occurrence: None)
  Receive Date: 20070426
  Receipt Date: 20070416
  Transmission Date: 20071010
  Serious: Yes (Other)
  Sender: FDA-Public Use
  Company Number: PHEH2007US05603

PATIENT
  Age: 51 Year
  Sex: Female

DRUGS (1)
  1. ZELNORM [Suspect]
     Route: 065

REACTIONS (1)
  - CARDIAC DISORDER [None]
